FAERS Safety Report 7003863-9 (Version None)
Quarter: 2010Q3

REPORT INFORMATION
  Report Type: 
  Country: None (occurrence: None)
  Receive Date: 20100920
  Receipt Date: 20100104
  Transmission Date: 20110219
  Serious: No
  Sender: FDA-Public Use
  Company Number: US-WYE-H12886310

PATIENT
  Age: 33 Year
  Sex: Male

DRUGS (5)
  1. PRISTIQ [Suspect]
     Indication: DEPRESSION
     Route: 048
     Dates: start: 20091201, end: 20091201
  2. CLONAZEPAM [Concomitant]
  3. AMBIEN CR [Concomitant]
  4. LEXAPRO [Suspect]
     Indication: GENERALISED ANXIETY DISORDER
     Route: 048
     Dates: start: 20030101, end: 20091229
  5. LEXAPRO [Suspect]
     Route: 048
     Dates: start: 20091230

REACTIONS (4)
  - AGITATION [None]
  - ANXIETY [None]
  - INSOMNIA [None]
  - PALPITATIONS [None]
